FAERS Safety Report 6974733-7 (Version None)
Quarter: 2010Q3

REPORT INFORMATION
  Report Type: 
  Country: None (occurrence: None)
  Receive Date: 20100909
  Receipt Date: 20081204
  Transmission Date: 20110219
  Serious: No
  Sender: FDA-Public Use
  Company Number: US-WYE-H07134008

PATIENT
  Sex: Female

DRUGS (3)
  1. PRISTIQ [Suspect]
     Route: 048
     Dates: start: 20081101, end: 20080101
  2. PRISTIQ [Suspect]
     Dosage: TAPERED OFF EVERY OTHER DAY
     Route: 048
     Dates: start: 20080101, end: 20080101
  3. CELEXA [Concomitant]

REACTIONS (4)
  - ABDOMINAL PAIN UPPER [None]
  - CHILLS [None]
  - DRUG WITHDRAWAL SYNDROME [None]
  - DRY MOUTH [None]
